FAERS Safety Report 4966971-X (Version None)
Quarter: 2006Q2

REPORT INFORMATION
  Report Type: 
  Country: None (occurrence: None)
  Receive Date: 20060403
  Receipt Date: 20060324
  Transmission Date: 20061013
  Serious: Yes (Other)
  Sender: FDA-Public Use
  Company Number: 2006041620

PATIENT
  Age: 70 Year
  Sex: Female
  Weight: 90.7194 kg

DRUGS (2)
  1. LIPITOR (ATORVASTATIN) [Suspect]
     Indication: ILL-DEFINED DISORDER
     Dosage: UNKNOWN
     Route: 065
  2. TAMOXIFEN CITRATE [Suspect]
     Indication: BREAST CANCER
     Dosage: UNKNOWN
     Route: 065
     Dates: start: 20010101

REACTIONS (4)
  - BREAST CANCER FEMALE [None]
  - DIABETES MELLITUS [None]
  - MUSCLE SPASMS [None]
  - UTERINE CANCER [None]
